FAERS Safety Report 9643752 (Version 1)
Quarter: 2013Q4

REPORT INFORMATION
  Report Type: Spontaneous
  Country: US (occurrence: US)
  Receive Date: 20131024
  Receipt Date: 20131024
  Transmission Date: 20140711
  Serious: Yes (Hospitalization, Other)
  Sender: FDA-Public Use
  Company Number: US-PFIZER INC-2013303820

PATIENT
  Age: 77 Year
  Sex: Female
  Weight: 94.33 kg

DRUGS (2)
  1. NORVASC [Suspect]
     Dosage: UNK
     Route: 048
  2. LIPITOR [Suspect]
     Dosage: UNK
     Route: 048

REACTIONS (3)
  - Colon cancer [Unknown]
  - Asthenia [Recovered/Resolved]
  - Malaise [Unknown]
